FAERS Safety Report 9604287 (Version 3)
Quarter: 2014Q1

REPORT INFORMATION
  Report Type: Report from Study
  Country: AR (occurrence: AR)
  Receive Date: 20131008
  Receipt Date: 20140106
  Transmission Date: 20141002
  Serious: Yes (Other)
  Sender: FDA-Public Use
  Company Number: PHHY2013AR112149

PATIENT
  Sex: Male

DRUGS (2)
  1. LAPENAX [Suspect]
     Dosage: 400 UKN, UNK
     Route: 048
     Dates: start: 2005
  2. LAPENAX [Suspect]
     Dosage: 450 UKN, UNK
     Route: 048

REACTIONS (6)
  - Aggression [Not Recovered/Not Resolved]
  - Decreased appetite [Not Recovered/Not Resolved]
  - Concomitant disease aggravated [Not Recovered/Not Resolved]
  - Dysphagia [Not Recovered/Not Resolved]
  - Discomfort [Unknown]
  - Tachycardia [Not Recovered/Not Resolved]
